FAERS Safety Report 9855056 (Version 1)
Quarter: 2014Q1

REPORT INFORMATION
  Report Type: Report from Study
  Country: FR (occurrence: FR)
  Receive Date: 20140130
  Receipt Date: 20140130
  Transmission Date: 20141002
  Serious: Yes (Hospitalization, Other)
  Sender: FDA-Public Use
  Company Number: FR-ROCHE-1335459

PATIENT
  Sex: Female

DRUGS (33)
  1. RITUXIMAB [Suspect]
     Indication: RHEUMATOID ARTHRITIS
     Dosage: D1
     Route: 041
     Dates: start: 20050304
  2. RITUXIMAB [Suspect]
     Dosage: D15
     Route: 041
     Dates: start: 20050317
  3. RITUXIMAB [Suspect]
     Dosage: D1
     Route: 041
     Dates: start: 20050712
  4. RITUXIMAB [Suspect]
     Dosage: D15
     Route: 041
     Dates: start: 20050726
  5. RITUXIMAB [Suspect]
     Dosage: D1
     Route: 041
     Dates: start: 20051220
  6. RITUXIMAB [Suspect]
     Dosage: D15
     Route: 041
     Dates: start: 20060103
  7. RITUXIMAB [Suspect]
     Dosage: D1
     Route: 041
     Dates: start: 20060414
  8. RITUXIMAB [Suspect]
     Dosage: D15
     Route: 041
     Dates: start: 20060426
  9. RITUXIMAB [Suspect]
     Dosage: D1
     Route: 041
     Dates: start: 20060718
  10. RITUXIMAB [Suspect]
     Dosage: D15
     Route: 041
     Dates: start: 20060802
  11. RITUXIMAB [Suspect]
     Dosage: D1
     Route: 041
     Dates: start: 20061212
  12. RITUXIMAB [Suspect]
     Dosage: D15
     Route: 041
     Dates: start: 20061229
  13. RITUXIMAB [Suspect]
     Dosage: D1
     Route: 041
     Dates: start: 20070612
  14. RITUXIMAB [Suspect]
     Dosage: D15
     Route: 041
     Dates: start: 20070629
  15. RITUXIMAB [Suspect]
     Dosage: D1
     Route: 041
     Dates: start: 20080516
  16. RITUXIMAB [Suspect]
     Dosage: D15
     Route: 041
     Dates: start: 20080530
  17. RITUXIMAB [Suspect]
     Dosage: D1
     Route: 041
     Dates: start: 20090406
  18. RITUXIMAB [Suspect]
     Dosage: D15
     Route: 041
     Dates: start: 20090420
  19. RITUXIMAB [Suspect]
     Dosage: D1
     Route: 041
     Dates: start: 20100216
  20. RITUXIMAB [Suspect]
     Dosage: D15
     Route: 041
     Dates: start: 20100302
  21. TOCILIZUMAB [Suspect]
     Indication: RHEUMATOID ARTHRITIS
     Route: 065
     Dates: start: 20100514
  22. COTAREG [Concomitant]
     Dosage: 160/12.5
     Route: 065
  23. FUNGIZONE [Concomitant]
  24. CORTANCYL [Concomitant]
     Route: 065
     Dates: start: 20050317
  25. CORTANCYL [Concomitant]
     Route: 065
     Dates: start: 20050726
  26. CORTANCYL [Concomitant]
     Route: 065
     Dates: start: 20060103
  27. CORTANCYL [Concomitant]
     Route: 065
     Dates: start: 20060426
  28. CORTANCYL [Concomitant]
     Route: 065
     Dates: start: 20060802
  29. CORTANCYL [Concomitant]
     Route: 065
     Dates: start: 20061229
  30. CORTANCYL [Concomitant]
     Route: 065
     Dates: start: 20070629
  31. CORTANCYL [Concomitant]
     Route: 065
     Dates: start: 20080530
  32. CORTANCYL [Concomitant]
     Route: 065
     Dates: start: 20090420
  33. CORTANCYL [Concomitant]
     Route: 065
     Dates: start: 20100302

REACTIONS (23)
  - Headache [Not Recovered/Not Resolved]
  - Hypotension [Recovered/Resolved]
  - Parathyroid tumour benign [Unknown]
  - Paraesthesia [Recovered/Resolved]
  - Infusion related reaction [Recovered/Resolved]
  - Hypertension [Recovered/Resolved]
  - Pruritus [Recovered/Resolved]
  - Infusion related reaction [Recovered/Resolved]
  - Arthralgia [Unknown]
  - Arthralgia [Unknown]
  - Musculoskeletal pain [Unknown]
  - Arthralgia [Unknown]
  - Hyperparathyroidism primary [Unknown]
  - Vitamin D deficiency [Unknown]
  - Rheumatoid arthritis [Unknown]
  - Arthralgia [Unknown]
  - Meningioma [Unknown]
  - Influenza [Recovered/Resolved]
  - Foot fracture [Not Recovered/Not Resolved]
  - Chills [Unknown]
  - Diarrhoea [Unknown]
  - Pain in extremity [Unknown]
  - Musculoskeletal pain [Unknown]
